FAERS Safety Report 7911267-7 (Version None)
Quarter: 2011Q4

REPORT INFORMATION
  Report Type: 
  Country: None (occurrence: None)
  Receive Date: 20111114
  Receipt Date: 20111108
  Transmission Date: 20120403
  Serious: Yes (Hospitalization)
  Sender: FDA-Public Use
  Company Number: US-SHIRE-ALL1-2011-04353

PATIENT
  Sex: Male
  Weight: 48.526 kg

DRUGS (7)
  1. INTUNIV [Suspect]
     Dosage: 1 MG, 1X/DAY:QD
     Route: 048
     Dates: start: 20111107
  2. MULTI-VITAMINS [Concomitant]
     Indication: SUPPLEMENTATION THERAPY
     Dosage: UNK, 1X/DAY:QD
     Route: 048
  3. INTUNIV [Suspect]
     Dosage: 3 MG, 1X/DAY:QD
     Route: 048
     Dates: start: 20111020, end: 20111031
  4. INTUNIV [Suspect]
     Dosage: 1 MG, 1X/DAY:QD
     Route: 048
     Dates: start: 20111006, end: 20111012
  5. INTUNIV [Suspect]
     Indication: ATTENTION DEFICIT/HYPERACTIVITY DISORDER
     Dosage: 2 MG, 1X/DAY:QD
     Route: 048
     Dates: start: 20111013, end: 20111019
  6. INTUNIV [Suspect]
     Dosage: 2 MG, 1X/DAY:QD
     Route: 048
     Dates: start: 20111031, end: 20111106
  7. ZYRTEC [Concomitant]
     Indication: SEASONAL ALLERGY
     Dosage: UNK, AS REQ'D
     Route: 048

REACTIONS (6)
  - INSOMNIA [None]
  - ANXIETY [None]
  - NEGATIVE THOUGHTS [None]
  - SELF-INJURIOUS IDEATION [None]
  - TACHYPHRENIA [None]
  - VIOLENCE-RELATED SYMPTOM [None]
